FAERS Safety Report 5357415-7 (Version None)
Quarter: 2007Q2

REPORT INFORMATION
  Report Type: 
  Country: None (occurrence: None)
  Receive Date: 20070612
  Receipt Date: 20070612
  Transmission Date: 20071010
  Serious: Yes (Hospitalization)
  Sender: FDA-Public Use
  Company Number: None

PATIENT
  Sex: Male

DRUGS (4)
  1. REVLIMID [Suspect]
     Indication: MULTIPLE MYELOMA
     Dosage: 25 MG DAILY FOR 21D/28D PO
     Route: 048
     Dates: start: 20070518, end: 20070608
  2. OMEPRAZOLE [Concomitant]
  3. DEXAMETHASONE 0.5MG TAB [Concomitant]
  4. METHADONE HCL [Concomitant]

REACTIONS (6)
  - ACUTE CORONARY SYNDROME [None]
  - ATRIAL FIBRILLATION [None]
  - CHEST DISCOMFORT [None]
  - DYSPNOEA [None]
  - PULMONARY EMBOLISM [None]
  - SINUS BRADYCARDIA [None]
